FAERS Safety Report 13444860 (Version 1)
Quarter: 2017Q2

REPORT INFORMATION
  Report Type: Spontaneous
  Country: JP (occurrence: JP)
  Receive Date: 20170414
  Receipt Date: 20170414
  Transmission Date: 20170830
  Serious: Yes (Other)
  Sender: FDA-Public Use
  Company Number: JP-AMGEN-JPNSP2017058136

PATIENT
  Sex: Female

DRUGS (1)
  1. G-LASTA [Suspect]
     Active Substance: PEGFILGRASTIM
     Indication: PRODUCT USED FOR UNKNOWN INDICATION
     Dosage: UNK
     Route: 065

REACTIONS (9)
  - Platelet count decreased [Unknown]
  - Myalgia [Unknown]
  - Fatigue [Unknown]
  - Vomiting [Unknown]
  - Anaemia [Unknown]
  - Stomatitis [Unknown]
  - Diarrhoea [Unknown]
  - Postoperative wound infection [Unknown]
  - Nausea [Unknown]
